FAERS Safety Report 4829195-2 (Version None)
Quarter: 2005Q4

REPORT INFORMATION
  Report Type: 
  Country: None (occurrence: None)
  Receive Date: 20051027
  Receipt Date: 20050927
  Transmission Date: 20060501
  Serious: Yes (Hospitalization)
  Sender: FDA-Public Use
  Company Number: ZICO001292

PATIENT
  Age: 35 Year
  Sex: Female

DRUGS (2)
  1. PRIALT [Suspect]
     Dosage: 0.05 MCG/HR INTRATHECAL
     Route: 037
     Dates: start: 20050812, end: 20050822
  2. MORPHINE [Concomitant]

REACTIONS (9)
  - DEHYDRATION [None]
  - DIZZINESS [None]
  - DRUG WITHDRAWAL SYNDROME [None]
  - HEADACHE [None]
  - MALAISE [None]
  - NAUSEA [None]
  - PAIN IN EXTREMITY [None]
  - TREATMENT NONCOMPLIANCE [None]
  - VOMITING [None]
